FAERS Safety Report 5840591-7 (Version None)
Quarter: 2008Q3

REPORT INFORMATION
  Report Type: 
  Country: None (occurrence: None)
  Receive Date: 20080811
  Receipt Date: 20080730
  Transmission Date: 20090109
  Serious: Yes (Other)
  Sender: FDA-Public Use
  Company Number: CA-ELI_LILLY_AND_COMPANY-CA200808000148

PATIENT
  Age: 16 Year
  Sex: Male

DRUGS (3)
  1. STRATTERA [Suspect]
     Dates: start: 20080601
  2. STRATTERA [Suspect]
     Dosage: 25 MG, UNK
     Dates: start: 20080716
  3. STRATTERA [Suspect]
     Dosage: 40 MG, UNK
     Dates: start: 20080723, end: 20080725

REACTIONS (2)
  - BLOOD ALBUMIN INCREASED [None]
  - JAUNDICE [None]
